FAERS Safety Report 10419067 (Version 1)
Quarter: 2014Q3

REPORT INFORMATION
  Report Type: Spontaneous
  Country: FR (occurrence: FR)
  Receive Date: 20140829
  Receipt Date: 20140829
  Transmission Date: 20150326
  Serious: Yes (Hospitalization)
  Sender: FDA-Public Use
  Company Number: FR-ABBVIE-14P-056-1276819-00

PATIENT
  Age: 62 Year
  Sex: Female

DRUGS (7)
  1. BIOCALYPTOL [Concomitant]
     Active Substance: PHOLCODINE
     Indication: NASOPHARYNGITIS
     Dates: start: 20090109, end: 20090115
  2. PNEUMOREL [Concomitant]
     Active Substance: FENSPIRIDE HYDROCHLORIDE
     Indication: NASOPHARYNGITIS
     Dates: start: 20090102, end: 20090106
  3. RHINOFLUIMUCIL [Concomitant]
     Active Substance: ACETYLCYSTEINE\BENZALKONIUM CHLORIDE\TUAMINOHEPTANE SULFATE
     Indication: NASOPHARYNGITIS
     Dates: start: 20090102, end: 20090106
  4. SOLUPRED [Concomitant]
     Active Substance: PREDNISOLONE
     Indication: NASOPHARYNGITIS
     Dates: start: 20090102, end: 20090106
  5. MONONAXY 500 MG [Suspect]
     Active Substance: CLARITHROMYCIN
     Indication: NASOPHARYNGITIS
     Route: 048
     Dates: start: 20081230, end: 20090102
  6. AUGMENTIN [Suspect]
     Active Substance: AMOXICILLIN\CLAVULANATE POTASSIUM
     Indication: NASOPHARYNGITIS
     Dosage: FORM STRENGTH: 500 MG/125 MG, DAILY DOSE: 3 G
     Dates: start: 20090102, end: 20090106
  7. CELESTENE [Concomitant]
     Active Substance: BETAMETHASONE
     Indication: NASOPHARYNGITIS
     Route: 030
     Dates: start: 20090108, end: 20090108

REACTIONS (2)
  - Hypersensitivity vasculitis [Recovered/Resolved]
  - Purpura non-thrombocytopenic [Recovered/Resolved]

NARRATIVE: CASE EVENT DATE: 20090107
